FAERS Safety Report 4711526-5 (Version None)
Quarter: 2005Q3

REPORT INFORMATION
  Report Type: 
  Country: None (occurrence: None)
  Receive Date: 20050708
  Receipt Date: 20050708
  Transmission Date: 20060218
  Serious: Yes (Disabling)
  Sender: FDA-Public Use
  Company Number: None

PATIENT
  Sex: Male
  Weight: 97.5234 kg

DRUGS (9)
  1. VIAGRA [Suspect]
     Indication: ERECTILE DYSFUNCTION
     Dosage: 1 TAB PO PRN
     Route: 048
     Dates: start: 20010101, end: 20050528
  2. PREDNISONE [Concomitant]
  3. ASPIRIN [Concomitant]
  4. ASACOL [Concomitant]
  5. ATENOLOL [Concomitant]
  6. LISINOPRIL AND HYDROCHLOROTHIAZIDE [Concomitant]
  7. OMEGA-3 FATTY ACIDS [Concomitant]
  8. GARLIC TABLETS [Concomitant]
  9. MULTI-VITAMIN [Concomitant]

REACTIONS (4)
  - BLINDNESS [None]
  - HERPES ZOSTER [None]
  - OPTIC ISCHAEMIC NEUROPATHY [None]
  - RETINAL INFARCTION [None]
